FAERS Safety Report 4444049-1 (Version None)
Quarter: 2004Q3

REPORT INFORMATION
  Report Type: 
  Country: None (occurrence: None)
  Receive Date: 20040729
  Receipt Date: 20030702
  Transmission Date: 20050211
  Serious: Yes (Death, Hospitalization)
  Sender: FDA-Public Use
  Company Number: USA-2003-0008551

PATIENT
  Age: 26 Year
  Sex: Male
  Weight: 98.9 kg

DRUGS (3)
  1. MORPHINE SULFATE [Suspect]
  2. ETHANOL (ETHANOL) [Suspect]
     Dosage: ORAL
     Route: 048
     Dates: start: 20000919
  3. PERCOCET [Suspect]
     Dosage: ORAL
     Route: 048
     Dates: start: 20000919

REACTIONS (5)
  - ACCIDENTAL OVERDOSE [None]
  - CARDIAC ARREST [None]
  - COMA [None]
  - MULTIPLE DRUG OVERDOSE [None]
  - WHEEZING [None]
